FAERS Safety Report 8781454 (Version 5)
Quarter: 2013Q4

REPORT INFORMATION
  Report Type: Spontaneous
  Country: US (occurrence: US)
  Receive Date: 20120913
  Receipt Date: 20131025
  Transmission Date: 20140711
  Serious: Yes (Life-Threatening, Hospitalization)
  Sender: FDA-Public Use
  Company Number: PHEH2012US017629

PATIENT
  Age: 82 Year
  Sex: Female
  Weight: 82 kg

DRUGS (3)
  1. EXELON PATCH [Suspect]
     Indication: DEMENTIA
     Dosage: 9.5 MG, DAILY
     Route: 062
     Dates: start: 20120503
  2. EXELON PATCH [Suspect]
     Dosage: 3 DF (1 PATCH ON HER BACK AND 1 ON HER ARM AND 1 IN HER AIRWAY)
     Route: 062
  3. EXELON PATCH [Suspect]
     Dosage: 4 DF, (4 PATCHES IN WHICH 3 ON HER BACK AND 1 ON HER ARM)
     Route: 062
     Dates: end: 20120905

REACTIONS (24)
  - Apparent death [Unknown]
  - Respiratory failure [Recovering/Resolving]
  - Oxygen saturation decreased [Recovering/Resolving]
  - Hypoxia [Recovering/Resolving]
  - Cyanosis [Unknown]
  - Encephalopathy [Recovering/Resolving]
  - Mental disorder [Unknown]
  - Hypotension [Recovering/Resolving]
  - Overdose [Recovering/Resolving]
  - Aspiration [Recovering/Resolving]
  - Respiratory depression [Recovering/Resolving]
  - Pneumonia aspiration [Unknown]
  - Cough [Unknown]
  - Hyperhidrosis [Unknown]
  - Heart rate increased [Unknown]
  - Lethargy [Unknown]
  - Vomiting [Unknown]
  - Muscle contractions involuntary [Unknown]
  - Micturition disorder [Unknown]
  - Abnormal faeces [Unknown]
  - Tremor [Unknown]
  - Wrong technique in drug usage process [Unknown]
  - Incorrect route of drug administration [Unknown]
  - Incorrect drug administration duration [Unknown]
